FAERS Safety Report 11320055 (Version 2)
Quarter: 2015Q3

REPORT INFORMATION
  Report Type: Report from Study
  Country: US (occurrence: US)
  Receive Date: 20150729
  Receipt Date: 20150825
  Transmission Date: 20151125
  Serious: No
  Sender: FDA-Public Use
  Company Number: US-AMGEN-USASL2015073932

PATIENT
  Age: 63 Year
  Sex: Female

DRUGS (2)
  1. ENBREL [Suspect]
     Active Substance: ETANERCEPT
     Indication: RHEUMATOID ARTHRITIS
     Dosage: 50 MG, QWK
     Route: 065
  2. ENBREL [Suspect]
     Active Substance: ETANERCEPT
     Dosage: 50 MG, QWK
     Route: 065
     Dates: start: 20150720

REACTIONS (5)
  - Musculoskeletal injury [Recovering/Resolving]
  - Fall [Recovering/Resolving]
  - Drug dose omission [Unknown]
  - Pain [Unknown]
  - Head injury [Recovering/Resolving]

NARRATIVE: CASE EVENT DATE: 20150807
